FAERS Safety Report 8098536 (Version 2)
Quarter: 2013Q4

REPORT INFORMATION
  Report Type: Spontaneous
  Country: US (occurrence: None)
  Receive Date: 20100909
  Receipt Date: 20131119
  Transmission Date: 20140711
  Serious: Yes (Other)
  Sender: FDA-Public Use
  Company Number: 20100413

PATIENT
  Age: 34 Year
  Sex: Female

DRUGS (5)
  1. METHYLENE BLUE [Suspect]
     Indication: PARATHYROID DISORDER
     Dosage: 3 MG/KG IN 500 ML NSS, INTRAVENOUS
     Route: 042
  2. VENLAFAXINE HYDROCHLORIDE [Suspect]
  3. ONDANSETRON [Concomitant]
  4. MIRTAZAPINE [Suspect]
  5. QUETIAPINE [Suspect]

REACTIONS (3)
  - Encephalopathy [None]
  - Post procedural complication [None]
  - Off label use [None]
